FAERS Safety Report 9597318 (Version 1)
Quarter: 2013Q4

REPORT INFORMATION
  Report Type: Spontaneous
  Country: US (occurrence: US)
  Receive Date: 20131004
  Receipt Date: 20131004
  Transmission Date: 20140711
  Serious: No
  Sender: FDA-Public Use
  Company Number: US-AMGEN-USASP2013018450

PATIENT
  Age: 69 Year
  Sex: Male
  Weight: 79.37 kg

DRUGS (7)
  1. ENBREL [Suspect]
     Indication: PSORIATIC ARTHROPATHY
     Dosage: 50 MG, QWK
     Route: 058
  2. EFFIENT [Concomitant]
     Dosage: 5 MG, UNK
  3. SYMBICORT [Concomitant]
     Dosage: 160-4.5UNK, UNK
  4. SINGULAIR [Concomitant]
     Dosage: 10 MG, UNK
  5. ASPIRIN [Concomitant]
     Dosage: 81 MG, UNK
  6. MICARDIS [Concomitant]
     Dosage: 20 MG, UNK
  7. LIPITOR [Concomitant]
     Dosage: 10 MG, UNK

REACTIONS (1)
  - Fatigue [Unknown]
